FAERS Safety Report 8540447-5 (Version None)
Quarter: 2012Q3

REPORT INFORMATION
  Report Type: 
  Country: None (occurrence: None)
  Receive Date: 20120726
  Receipt Date: 20110715
  Transmission Date: 20120928
  Serious: No
  Sender: FDA-Public Use
  Company Number: US-ASTRAZENECA-2011SE42364

PATIENT
  Sex: Female

DRUGS (8)
  1. AMITRIPTYLINE HYDROCHLORIDE [Concomitant]
  2. LISINOPRIL [Concomitant]
  3. CYMBALTA [Concomitant]
  4. TRAZODONE HYDROCHLORIDE [Concomitant]
  5. BUSPIRONE HCL [Concomitant]
  6. SEROQUEL [Suspect]
     Indication: DEPRESSION
     Dosage: 200 MG, TWO TIMES A DAY
     Route: 048
     Dates: start: 20110601
  7. MORPHINE SULFATE [Concomitant]
  8. ALPRAZOLAM [Concomitant]

REACTIONS (2)
  - FALL [None]
  - FOOT FRACTURE [None]
